FAERS Safety Report 10405439 (Version 1)
Quarter: 2014Q3

REPORT INFORMATION
  Report Type: Spontaneous
  Country: IT (occurrence: None)
  Receive Date: 20140820
  Receipt Date: 20140820
  Transmission Date: 20150326
  Serious: Yes (Other)
  Sender: FDA-Public Use
  Company Number: 2486390

PATIENT
  Age: 34 Year
  Sex: Female
  Weight: 53 kg

DRUGS (3)
  1. ENDOXAN /00021101/) [Concomitant]
  2. DOCETAXEL [Suspect]
     Active Substance: DOCETAXEL
     Indication: BREAST CANCER
     Dosage: CYCLICAL
     Route: 041
     Dates: start: 20140805, end: 20140805
  3. EUTIROX [Concomitant]
     Active Substance: LEVOTHYROXINE SODIUM

REACTIONS (6)
  - Speech disorder [None]
  - Dyspnoea [None]
  - Hypersensitivity [None]
  - Joint stiffness [None]
  - Infusion related reaction [None]
  - Muscle rigidity [None]

NARRATIVE: CASE EVENT DATE: 20140805
